FAERS Safety Report 6715077-8 (Version None)
Quarter: 2010Q2

REPORT INFORMATION
  Report Type: 
  Country: None (occurrence: None)
  Receive Date: 20100507
  Receipt Date: 20100429
  Transmission Date: 20101027
  Serious: Yes (Hospitalization, Other)
  Sender: FDA-Public Use
  Company Number: US-ASTRAZENECA-2006UW20176

PATIENT
  Age: 488 Month
  Sex: Female
  Weight: 63 kg

DRUGS (47)
  1. SEROQUEL [Suspect]
     Indication: MAJOR DEPRESSION
     Dosage: 25 TO 300 MG
     Route: 048
     Dates: start: 20020724, end: 20060101
  2. SEROQUEL [Suspect]
     Indication: ANXIETY
     Dosage: 25 TO 300 MG
     Route: 048
     Dates: start: 20020724, end: 20060101
  3. SEROQUEL [Suspect]
     Indication: PANIC ATTACK
     Dosage: 25 TO 300 MG
     Route: 048
     Dates: start: 20020724, end: 20060101
  4. SEROQUEL [Suspect]
     Indication: PANIC DISORDER WITH AGORAPHOBIA
     Dosage: 25 TO 300 MG
     Route: 048
     Dates: start: 20020724, end: 20060101
  5. SEROQUEL [Suspect]
     Indication: PANIC DISORDER
     Dosage: 25 TO 300 MG
     Route: 048
     Dates: start: 20020724, end: 20060101
  6. SEROQUEL [Suspect]
     Indication: SCHIZOPHRENIA
     Dosage: 25 TO 300 MG
     Route: 048
     Dates: start: 20020724, end: 20060101
  7. RISPERDAL [Suspect]
     Indication: DEPRESSION
     Dosage: 1MG TO 4 MG
     Dates: start: 19930101, end: 20021017
  8. RISPERDAL [Suspect]
     Indication: PSYCHOTIC DISORDER
     Dosage: 1MG TO 4 MG
     Dates: start: 19930101, end: 20021017
  9. RISPERDAL [Suspect]
     Indication: ANXIETY
     Dosage: 1MG TO 4 MG
     Dates: start: 19930101, end: 20021017
  10. RISPERDAL [Suspect]
     Indication: PANIC ATTACK
     Dosage: 1MG TO 4 MG
     Dates: start: 19930101, end: 20021017
  11. RISPERDAL [Suspect]
     Indication: PANIC DISORDER WITH AGORAPHOBIA
     Dosage: 1MG TO 4 MG
     Dates: start: 19930101, end: 20021017
  12. RISPERDAL [Suspect]
     Indication: MAJOR DEPRESSION
     Dosage: 1MG TO 4 MG
     Dates: start: 19930101, end: 20021017
  13. RISPERDAL [Suspect]
     Indication: SCHIZOPHRENIA
     Dosage: 1MG TO 4 MG
     Dates: start: 19930101, end: 20021017
  14. ZOLOFT [Concomitant]
     Indication: DEPRESSION
     Dates: start: 19980701, end: 19980901
  15. ZOLOFT [Concomitant]
     Indication: ANXIETY
     Dates: start: 19980701, end: 19980901
  16. XANAX [Concomitant]
     Indication: DEPRESSION
     Dosage: 0.5 MG TO 4.5 MG
     Dates: start: 19930701, end: 19950701
  17. XANAX [Concomitant]
     Indication: PANIC ATTACK
     Dosage: 0.5 MG TO 4.5 MG
     Dates: start: 19930701, end: 19950701
  18. WELLBUTRIN [Concomitant]
     Indication: DEPRESSION
     Dosage: 75 TO 100 MG
     Dates: start: 19940801, end: 20010711
  19. VALIUM [Concomitant]
     Dosage: 3MG TO 10 MG
     Dates: start: 20061013, end: 20061018
  20. TRAZODONE HCL [Concomitant]
     Indication: ANXIETY
     Dosage: 50 MG TO 600  MG
     Dates: start: 20001024, end: 20080601
  21. TRAZODONE HCL [Concomitant]
     Indication: DEPRESSION
     Dosage: 50 MG TO 600  MG
     Dates: start: 20001024, end: 20080601
  22. TOFRANIL [Concomitant]
     Indication: DEPRESSION
     Dosage: 25 MG TO 225 MG
     Dates: start: 19950301, end: 19950401
  23. TOFRANIL [Concomitant]
     Indication: ANXIETY
     Dosage: 25 MG TO 225 MG
     Dates: start: 19950301, end: 19950401
  24. TEGRETOL [Concomitant]
     Indication: DEPRESSION
     Dosage: 200 TO 300 MG
     Dates: start: 19950301, end: 19950401
  25. TEGRETOL [Concomitant]
     Indication: ANXIETY
     Dosage: 200 TO 300 MG
     Dates: start: 19950301, end: 19950401
  26. SERZONE [Concomitant]
     Dates: start: 20000829
  27. REMERON [Concomitant]
     Indication: DEPRESSION
     Dosage: 15 TO 45 MG
     Dates: start: 20020724, end: 20031013
  28. REMERON [Concomitant]
     Indication: ANXIETY
     Dosage: 15 TO 45 MG
     Dates: start: 20020724, end: 20031013
  29. PROZAC [Concomitant]
     Indication: DEPRESSION
     Dosage: 40 TO 80 MG
     Dates: start: 19940501, end: 19940601
  30. PROZAC [Concomitant]
     Indication: PANIC ATTACK
     Dosage: 40 TO 80 MG
     Dates: start: 19940501, end: 19940601
  31. PAXIL [Concomitant]
     Indication: DEPRESSION
     Dosage: 10 MG- 40 MG
     Dates: start: 19930701, end: 20001024
  32. PAXIL [Concomitant]
     Indication: PANIC ATTACK
     Dosage: 10 MG- 40 MG
     Dates: start: 19930701, end: 20001024
  33. NEURONTIN [Concomitant]
     Indication: BIPOLAR DISORDER
     Dosage: 200 TO 800 MG
     Dates: start: 20030826, end: 20060601
  34. NEURONTIN [Concomitant]
     Indication: DEPRESSION
     Dosage: 200 TO 800 MG
     Dates: start: 20030826, end: 20060601
  35. LITHIUM CARBONATE [Concomitant]
     Dosage: 300 MG TWO TIMES
     Dates: start: 19940801
  36. KLONOPIN [Concomitant]
     Indication: DEPRESSION
     Dosage: 0.5 MG TO 5 MG
     Dates: start: 19950401, end: 20061201
  37. EFFEXOR [Concomitant]
     Indication: DEPRESSION
     Dosage: 37.5 MG TO 75 MG
     Dates: start: 19940601, end: 20061201
  38. EFFEXOR [Concomitant]
     Indication: PANIC ATTACK
     Dosage: 37.5 MG TO 75 MG
     Dates: start: 19940601, end: 20061201
  39. CYMBALTA [Concomitant]
     Indication: BIPOLAR DISORDER
     Dosage: 30 MG TO 90 MG
     Dates: start: 20050817, end: 20061204
  40. CYMBALTA [Concomitant]
     Indication: DEPRESSION
     Dosage: 30 MG TO 90 MG
     Dates: start: 20050817, end: 20061204
  41. CYMBALTA [Concomitant]
     Indication: ANXIETY
     Dosage: 30 MG TO 90 MG
     Dates: start: 20050817, end: 20061204
  42. CELEXA [Concomitant]
     Indication: DEPRESSION
     Dosage: 8 MG TO 80 MG
     Dates: start: 20001024, end: 20030831
  43. CELEXA [Concomitant]
     Indication: ANXIETY
     Dosage: 8 MG TO 80 MG
     Dates: start: 20001024, end: 20030831
  44. ATIVAN [Concomitant]
     Indication: PANIC ATTACK
     Dosage: 1MG TO 2 MG
     Dates: start: 20021008, end: 20060531
  45. GEODON [Concomitant]
     Indication: SCHIZOPHRENIA
     Dates: start: 20060501
  46. ABILIFY [Concomitant]
     Indication: SCHIZOPHRENIA
     Dates: start: 20060501, end: 20060601
  47. PAROXETINE HCL [Concomitant]
     Dates: start: 20041120, end: 20041122

REACTIONS (5)
  - CORONARY ARTERY DISEASE [None]
  - MOVEMENT DISORDER [None]
  - MULTIPLE SCLEROSIS [None]
  - TARDIVE DYSKINESIA [None]
  - TYPE 2 DIABETES MELLITUS [None]
